FAERS Safety Report 9714869 (Version 1)
Quarter: 2013Q4

REPORT INFORMATION
  Report Type: Spontaneous
  Country: GB (occurrence: None)
  Receive Date: 20131125
  Receipt Date: 20131125
  Transmission Date: 20140711
  Serious: Yes (Hospitalization)
  Sender: FDA-Public Use
  Company Number: FK201305076

PATIENT
  Age: 69 Year
  Sex: Female
  Weight: 66.2 kg

DRUGS (8)
  1. CARBOPLATIN (MANUFACTURER UNKNOWN) (CARBOPLATIN) (CARBOPLATIN) [Suspect]
     Indication: BREAST CANCER
     Dates: start: 20120801
  2. DOCETAXEL (MANUFACTURER UNKNOWN) (DOCETAXEL) (DOCTAXEL) [Suspect]
     Indication: BREAST CANCER
     Dates: start: 20120801
  3. HERCEPTIN (TRASTUZUMAB) (TRASTUZUMAB) [Suspect]
     Indication: BREAST CANCER
     Dosage: 400 MG, INTRAVENOUS (NOT OTHERWISE SPECIFIED)
     Route: 042
     Dates: start: 20120612
  4. PERTUZUMAB (PERTUZUMAB) (PERTUZUMAB) [Suspect]
     Indication: BREAST CANCER
     Dates: start: 20120612
  5. SUCRALFATE (SUCRALFATE) UNKNOWN [Suspect]
     Dates: start: 20120710
  6. DOMPERIDONE (DOMPERIDONE) [Concomitant]
  7. LANSOPRAZOLE (LANSOPRAZOLE) [Concomitant]
  8. THYROXINE 9LEVOTHYROXINE SODIUM) [Concomitant]

REACTIONS (5)
  - Dehydration [None]
  - Malaise [None]
  - Nausea [None]
  - Malaise [None]
  - Vomiting [None]
